FAERS Safety Report 14179573 (Version 2)
Quarter: 2018Q2

REPORT INFORMATION
  Report Type: Spontaneous
  Country: FR (occurrence: FR)
  Receive Date: 20171110
  Receipt Date: 20180509
  Transmission Date: 20180711
  Serious: Yes (Hospitalization, Other)
  Sender: FDA-Public Use
  Company Number: FR-GILEAD-2017-0303000

PATIENT
  Age: 53 Year
  Sex: Male
  Weight: 50 kg

DRUGS (4)
  1. VITAMIN D                          /00107901/ [Concomitant]
     Active Substance: ERGOCALCIFEROL
  2. PREZISTA [Concomitant]
     Active Substance: DARUNAVIR ETHANOLATE
     Indication: HIV INFECTION
     Dosage: UNK
     Route: 048
     Dates: start: 20080323
  3. PREZISTA [Concomitant]
     Active Substance: DARUNAVIR ETHANOLATE
     Dosage: 1 DF, QD
     Route: 048
     Dates: start: 20171005
  4. STRIBILD [Suspect]
     Active Substance: COBICISTAT\ELVITEGRAVIR\EMTRICITABINE\TENOFOVIR DISOPROXIL FUMARATE
     Indication: HIV INFECTION
     Dosage: 1 DF, QD
     Route: 048
     Dates: start: 20160111, end: 20161121

REACTIONS (7)
  - Renal tubular disorder [Recovering/Resolving]
  - Multiple fractures [Recovered/Resolved with Sequelae]
  - General physical health deterioration [Recovered/Resolved]
  - Osteomalacia [Recovered/Resolved]
  - Osteoporosis [Not Recovered/Not Resolved]
  - Fanconi syndrome acquired [Recovered/Resolved]
  - Blood phosphorus decreased [Recovered/Resolved with Sequelae]

NARRATIVE: CASE EVENT DATE: 201611
